FAERS Safety Report 10192941 (Version 2)
Quarter: 2014Q2

REPORT INFORMATION
  Report Type: Spontaneous
  Country: GB (occurrence: GB)
  Receive Date: 20140523
  Receipt Date: 20140523
  Transmission Date: 20141212
  Serious: Yes (Hospitalization)
  Sender: FDA-Public Use
  Company Number: US-ASTRAZENECA-2014SE05480

PATIENT
  Age: 56 Day
  Sex: Female
  Weight: 2.2 kg

DRUGS (2)
  1. SYNAGIS [Suspect]
     Indication: PRODUCT USED FOR UNKNOWN INDICATION
     Route: 030
  2. SYNAGIS [Suspect]
     Indication: PRODUCT USED FOR UNKNOWN INDICATION
     Route: 030
     Dates: start: 20140120

REACTIONS (2)
  - Respiratory syncytial virus infection [Recovered/Resolved]
  - Parainfluenzae virus infection [Recovered/Resolved]
